FAERS Safety Report 13865515 (Version 4)
Quarter: 2017Q4

REPORT INFORMATION
  Report Type: Spontaneous
  Country: US (occurrence: US)
  Receive Date: 20170814
  Receipt Date: 20171031
  Transmission Date: 20180320
  Serious: No
  Sender: FDA-Public Use
  Company Number: US-ELI_LILLY_AND_COMPANY-US201708004944

PATIENT
  Age: 60 Year
  Sex: Female

DRUGS (5)
  1. TALTZ [Suspect]
     Active Substance: IXEKIZUMAB
     Indication: PSORIASIS
     Dosage: 160 MG, SINGLE
     Route: 058
     Dates: start: 20170731
  2. TRIAMCINOLON                       /00031902/ [Concomitant]
     Indication: PRODUCT USED FOR UNKNOWN INDICATION
  3. TALTZ [Suspect]
     Active Substance: IXEKIZUMAB
     Dosage: 80 MG, 2/M
     Route: 058
     Dates: start: 20170828
  4. LISINOPRIL. [Concomitant]
     Active Substance: LISINOPRIL
     Dosage: UNK, UNKNOWN
     Route: 065
  5. VITAMIN D                          /00107901/ [Concomitant]
     Active Substance: ERGOCALCIFEROL
     Dosage: UNK, UNKNOWN
     Route: 065

REACTIONS (4)
  - Psoriasis [Not Recovered/Not Resolved]
  - Macule [Not Recovered/Not Resolved]
  - Drug dose omission [Unknown]
  - Herpes zoster [Recovered/Resolved]

NARRATIVE: CASE EVENT DATE: 20170809
